FAERS Safety Report 16855925 (Version 1)
Quarter: 2019Q3

REPORT INFORMATION
  Report Type: Not Available
  Country: GB (occurrence: GB)
  Receive Date: 20190926
  Receipt Date: 20190926
  Transmission Date: 20191005
  Serious: Yes (Hospitalization, Other)
  Sender: FDA-Public Use
  Company Number: GB-SYNTHON BV-IN51PV19_50022

PATIENT
  Age: 80 Year
  Sex: Male

DRUGS (8)
  1. RANITIDINE. [Concomitant]
     Active Substance: RANITIDINE
     Dosage: 300 MILLIGRAM, QD
     Route: 048
  2. FUROSEMIDE. [Suspect]
     Active Substance: FUROSEMIDE
     Indication: PRODUCT USED FOR UNKNOWN INDICATION
     Dosage: 40 MILLIGRAM, QD (IN THE MORNING)
     Route: 048
     Dates: start: 20190614
  3. BISOPROLOL [Suspect]
     Active Substance: BISOPROLOL
     Indication: PRODUCT USED FOR UNKNOWN INDICATION
     Dosage: 2.5 MILLIGRAM, QD (IN THE MORNING)
     Route: 048
  4. CASSIA SENNA [Concomitant]
     Active Substance: HERBALS\SENNOSIDES
     Dosage: 15 MILLIGRAM, PRN (AT NIGHT)
     Route: 048
  5. TAMSULOSIN [Suspect]
     Active Substance: TAMSULOSIN
     Dosage: 400 MICROGRAM, QD (IN THE MORNING)
     Route: 048
  6. MICONAZOLE. [Concomitant]
     Active Substance: MICONAZOLE
     Dosage: 2 DOSAGE FORM, QD (APPLY.)
     Route: 061
  7. HYDROCORTISONE. [Concomitant]
     Active Substance: HYDROCORTISONE
     Dosage: 2 DOSAGE FORM, QD (APPLY)
     Route: 061
  8. HYDROXOCOBALAMIN [Concomitant]
     Active Substance: HYDROXOCOBALAMIN
     Dosage: 3 MILLIGRAM MONTHLY (1MG/1ML)
     Route: 030

REACTIONS (3)
  - Acute kidney injury [Recovered/Resolved]
  - Orthostatic hypotension [Recovered/Resolved]
  - Dizziness [Unknown]

NARRATIVE: CASE EVENT DATE: 20190731
